FAERS Safety Report 14347379 (Version 1)
Quarter: 2018Q1

REPORT INFORMATION
  Report Type: Spontaneous
  Country: US (occurrence: US)
  Receive Date: 20180102
  Receipt Date: 20180102
  Transmission Date: 20180509
  Serious: Yes (Death, Hospitalization)
  Sender: FDA-Public Use
  Company Number: None

PATIENT
  Age: 46 Year
  Sex: Male
  Weight: 93 kg

DRUGS (4)
  1. LISINOPRIL. [Concomitant]
     Active Substance: LISINOPRIL
  2. KRATOM [Suspect]
     Active Substance: MITRAGYNINE\HERBALS
     Indication: NEUROPATHY PERIPHERAL
     Route: 048
  3. CITALPORAM [Concomitant]
  4. METOPROLOL. [Concomitant]
     Active Substance: METOPROLOL

REACTIONS (6)
  - Seizure [None]
  - Coma [None]
  - Hepatic failure [None]
  - Jaundice [None]
  - Lethargy [None]
  - Mental status changes [None]

NARRATIVE: CASE EVENT DATE: 20180102
